FAERS Safety Report 5224973-2 (Version None)
Quarter: 2007Q1

REPORT INFORMATION
  Report Type: 
  Country: None (occurrence: None)
  Receive Date: 20070126
  Receipt Date: 20070122
  Transmission Date: 20070707
  Serious: Yes (Hospitalization)
  Sender: FDA-Public Use
  Company Number: 2006SP002721

PATIENT
  Age: 52 Year
  Sex: Male
  Weight: 52 kg

DRUGS (9)
  1. PEG-INTRON [Suspect]
     Indication: HEPATITIS C
     Dosage: 100 MCG;QW;SC
     Route: 058
     Dates: start: 20060512, end: 20060907
  2. REBETOL [Suspect]
     Indication: HEPATITIS C
     Dosage: SEE IMAGE
     Route: 048
     Dates: start: 20060512, end: 20060614
  3. REBETOL [Suspect]
     Indication: HEPATITIS C
     Dosage: SEE IMAGE
     Route: 048
     Dates: start: 20060615, end: 20060907
  4. DOGMATYLE (SULPIRIDE) [Suspect]
     Indication: BIPOLAR I DISORDER
     Dosage: 150 MG; PO
     Route: 048
     Dates: start: 20060831, end: 20060921
  5. DOGMATYLE (SULPIRIDE) [Suspect]
     Indication: INSOMNIA
     Dosage: 150 MG; PO
     Route: 048
     Dates: start: 20060831, end: 20060921
  6. PERPHENAZINE [Suspect]
     Indication: BIPOLAR I DISORDER
     Dosage: 2 MG; PO
     Route: 048
     Dates: start: 20060713, end: 20060921
  7. PERPHENAZINE [Suspect]
     Indication: INSOMNIA
     Dosage: 2 MG; PO
     Route: 048
     Dates: start: 20060713, end: 20060921
  8. CONTMIN (CLORPROMAZINE) [Suspect]
     Indication: BIPOLAR I DISORDER
     Dosage: 12.5 MG; PO
     Route: 048
     Dates: start: 20041109, end: 20060921
  9. CONTMIN (CLORPROMAZINE) [Suspect]
     Indication: INSOMNIA
     Dosage: 12.5 MG; PO
     Route: 048
     Dates: start: 20041109, end: 20060921

REACTIONS (10)
  - ANAEMIA [None]
  - ANOREXIA [None]
  - BIPOLAR I DISORDER [None]
  - CEREBRAL ATROPHY [None]
  - DYSPHAGIA [None]
  - DYSSTASIA [None]
  - INSOMNIA [None]
  - PARKINSONISM [None]
  - SPEECH DISORDER [None]
  - WEIGHT DECREASED [None]
